FAERS Safety Report 9962915 (Version 2)
Quarter: 2014Q1

REPORT INFORMATION
  Report Type: Report from Study
  Country: US (occurrence: US)
  Receive Date: 20140305
  Receipt Date: 20140305
  Transmission Date: 20141002
  Serious: Yes (Other)
  Sender: FDA-Public Use
  Company Number: US-ABBVIE-13P-163-1077352-00

PATIENT
  Age: 25 Year
  Sex: Male

DRUGS (3)
  1. HUMIRA [Suspect]
     Indication: COLITIS ULCERATIVE
     Dates: start: 20130109
  2. HUMIRA [Suspect]
     Dates: end: 20130429
  3. REMERON [Concomitant]
     Indication: ANXIETY
     Dosage: EVERY NIGHT AT BEDTIME
     Route: 048
     Dates: start: 2001

REACTIONS (5)
  - Multiple sclerosis [Not Recovered/Not Resolved]
  - Muscular weakness [Not Recovered/Not Resolved]
  - Muscular weakness [Not Recovered/Not Resolved]
  - Asthenia [Not Recovered/Not Resolved]
  - Joint instability [Not Recovered/Not Resolved]
